FAERS Safety Report 5201897-8 (Version None)
Quarter: 2007Q1

REPORT INFORMATION
  Report Type: 
  Country: None (occurrence: None)
  Receive Date: 20070104
  Receipt Date: 20061220
  Transmission Date: 20070707
  Serious: Yes (Life-Threatening, Hospitalization)
  Sender: FDA-Public Use
  Company Number: 2005-01126

PATIENT
  Age: 65 Year
  Sex: Female

DRUGS (6)
  1. VELCADE [Suspect]
     Indication: MULTIPLE MYELOMA
     Dosage: 1.30 MG/M2, INTRAVENOUS
     Route: 042
     Dates: start: 20040630, end: 20040823
  2. DEXAMETHASONE TAB [Suspect]
     Indication: MULTIPLE MYELOMA
     Dosage: 40.00 MG, ORAL
     Route: 048
     Dates: start: 20040630, end: 20040816
  3. OMEPRAZOLE [Concomitant]
  4. MORPHINE SULFATE INJ [Concomitant]
  5. PARACETAMOL [Concomitant]
  6. LORAZEPAM [Concomitant]

REACTIONS (10)
  - FUNGAL INFECTION [None]
  - HAEMOGLOBIN DECREASED [None]
  - HYPERTHERMIA [None]
  - HYPOXIA [None]
  - INFLUENZA LIKE ILLNESS [None]
  - LUNG DISORDER [None]
  - PLATELET COUNT INCREASED [None]
  - PRODUCTIVE COUGH [None]
  - PULMONARY FIBROSIS [None]
  - RHINITIS [None]
